FAERS Safety Report 9661545 (Version 2)
Quarter: 2013Q4

REPORT INFORMATION
  Report Type: Spontaneous
  Country: US (occurrence: US)
  Receive Date: 20131031
  Receipt Date: 20131031
  Transmission Date: 20140711
  Serious: No
  Sender: FDA-Public Use
  Company Number: US-PURDUE-USA-2010-0053563

PATIENT
  Sex: Male

DRUGS (6)
  1. OXYCONTIN (NDA 22-272) [Suspect]
     Indication: PAIN IN EXTREMITY
     Dosage: 120 MG, BID
     Route: 048
     Dates: start: 20101028
  2. OXYCONTIN (NDA 22-272) [Suspect]
     Dosage: 30 MG, UNK
  3. NORCO [Concomitant]
     Indication: PAIN
  4. METAMUCIL                          /00029101/ [Concomitant]
     Indication: PRODUCT USED FOR UNKNOWN INDICATION
  5. MIRALAX                            /00754501/ [Concomitant]
     Indication: PRODUCT USED FOR UNKNOWN INDICATION
  6. CADUET [Concomitant]
     Indication: PRODUCT USED FOR UNKNOWN INDICATION

REACTIONS (3)
  - Inadequate analgesia [Unknown]
  - Therapeutic response delayed [Unknown]
  - Drug ineffective [Unknown]
